FAERS Safety Report 7724081-2 (Version None)
Quarter: 2011Q3

REPORT INFORMATION
  Report Type: 
  Country: None (occurrence: None)
  Receive Date: 20110901
  Receipt Date: 20110823
  Transmission Date: 20111222
  Serious: Yes (Other)
  Sender: FDA-Public Use
  Company Number: AU-ASTRAZENECA-2011SE41248

PATIENT
  Sex: Male

DRUGS (2)
  1. NEXIUM [Suspect]
     Indication: GASTROOESOPHAGEAL REFLUX DISEASE
     Route: 048
     Dates: start: 20040101
  2. NEXIUM [Suspect]
     Indication: HIATUS HERNIA
     Route: 048
     Dates: start: 20040101

REACTIONS (5)
  - RENAL FAILURE CHRONIC [None]
  - MALAISE [None]
  - DIALYSIS [None]
  - TUBULOINTERSTITIAL NEPHRITIS [None]
  - RENAL IMPAIRMENT [None]
